FAERS Safety Report 12084517 (Version 1)
Quarter: 2016Q1

REPORT INFORMATION
  Report Type: Spontaneous
  Country: FR (occurrence: FR)
  Receive Date: 20160217
  Receipt Date: 20160217
  Transmission Date: 20160526
  Serious: Yes (Other)
  Sender: FDA-Public Use
  Company Number: FR-PFIZER INC-2016083332

PATIENT
  Age: 14 Year
  Sex: Male

DRUGS (5)
  1. TARGOCID [Concomitant]
     Active Substance: TEICOPLANIN
     Dosage: UNK
     Dates: start: 20151204
  2. VFEND [Concomitant]
     Active Substance: VORICONAZOLE
     Dosage: 150 MG, 2X/DAY
     Route: 042
     Dates: start: 20151123, end: 20151208
  3. TIENAM [Concomitant]
     Active Substance: CILASTATIN SODIUM\IMIPENEM
     Dosage: UNK
     Dates: start: 20151204
  4. VFEND [Suspect]
     Active Substance: VORICONAZOLE
     Dosage: 200 MG, 2X/DAY
     Route: 048
     Dates: start: 20151209, end: 20151215
  5. FLAGYL [Concomitant]
     Active Substance: METRONIDAZOLE\METRONIDAZOLE HYDROCHLORIDE
     Dosage: UNK
     Dates: start: 20151210

REACTIONS (2)
  - Drug level above therapeutic [Recovered/Resolved]
  - Alanine aminotransferase increased [Recovered/Resolved]

NARRATIVE: CASE EVENT DATE: 20151211
